FAERS Safety Report 23277433 (Version 2)
Quarter: 2024Q3

REPORT INFORMATION
  Report Type: Spontaneous
  Country: US (occurrence: US)
  Receive Date: 20231208
  Receipt Date: 20240814
  Transmission Date: 20241017
  Serious: Yes (Other)
  Sender: SPECGX
  Company Number: US-SPECGX-T202201658

PATIENT
  Age: 47 Year
  Sex: Female
  Weight: 107 kg

DRUGS (7)
  1. ACETAMINOPHEN\OXYCODONE HYDROCHLORIDE [Suspect]
     Active Substance: ACETAMINOPHEN\OXYCODONE HYDROCHLORIDE
     Indication: Pain
     Dosage: 7.5/325 MG, 4 TIMES A DAY
     Route: 048
  2. ACETAMINOPHEN\OXYCODONE HYDROCHLORIDE [Suspect]
     Active Substance: ACETAMINOPHEN\OXYCODONE HYDROCHLORIDE
     Dosage: 7.5/325 MG, 4 TIMES A DAY
     Route: 048
     Dates: start: 20231127
  3. ACETAMINOPHEN\HYDROCODONE [Suspect]
     Active Substance: ACETAMINOPHEN\HYDROCODONE
     Indication: Pain
     Dosage: UNK (6-8 TIMES A DAY)
     Route: 065
     Dates: start: 202207, end: 20220727
  4. ACETAMINOPHEN\HYDROCODONE [Suspect]
     Active Substance: ACETAMINOPHEN\HYDROCODONE
     Dosage: UNK, HALF OF THE TABLET
     Route: 065
     Dates: start: 20220727, end: 20220727
  5. LEVOTHYROXINE [Concomitant]
     Active Substance: LEVOTHYROXINE\LEVOTHYROXINE SODIUM
     Indication: Thyroid disorder
     Dosage: 25 MICROGRAM, TID
     Route: 065
  6. PHENTERMINE [Concomitant]
     Active Substance: PHENTERMINE
     Indication: Weight decreased
     Dosage: 37.5 MILLIGRAM, QD
     Route: 065
     Dates: start: 2023
  7. CYTOMEL [Concomitant]
     Active Substance: LIOTHYRONINE SODIUM
     Indication: Hypothyroidism
     Dosage: 5 MICROGRAM, QD
     Route: 065
     Dates: start: 2021

REACTIONS (14)
  - Blood pressure increased [Unknown]
  - Eye pain [Recovered/Resolved]
  - Head discomfort [Unknown]
  - Illness [Recovered/Resolved]
  - Ocular discomfort [Recovered/Resolved]
  - Palpitations [Unknown]
  - Headache [Unknown]
  - Nausea [Unknown]
  - Dizziness [Unknown]
  - Somnolence [Recovered/Resolved]
  - Withdrawal syndrome [Unknown]
  - Fatigue [Unknown]
  - Wrong technique in product usage process [Unknown]
  - Drug ineffective [Unknown]

NARRATIVE: CASE EVENT DATE: 20220701
